FAERS Safety Report 9750073 (Version 1)
Quarter: 2013Q4

REPORT INFORMATION
  Report Type: Spontaneous
  Country: DE (occurrence: DE)
  Receive Date: 20131212
  Receipt Date: 20131212
  Transmission Date: 20140711
  Serious: No
  Sender: FDA-Public Use
  Company Number: DE-GILEAD-DE-CVT-090829

PATIENT
  Age: 71 Year
  Sex: Male

DRUGS (9)
  1. RANEXA [Suspect]
     Indication: ANGINA PECTORIS
     Route: 048
     Dates: start: 20091123
  2. RANEXA [Suspect]
     Route: 048
  3. CORVATON [Concomitant]
     Route: 048
  4. ACCUPRO [Concomitant]
     Route: 048
  5. NEBILET [Concomitant]
     Route: 048
  6. ISCOVER [Concomitant]
     Route: 048
  7. ALLOPURINOL [Concomitant]
     Route: 048
  8. DYTIDE H [Concomitant]
     Route: 048
  9. SORTIS [Concomitant]
     Route: 048

REACTIONS (2)
  - Headache [Not Recovered/Not Resolved]
  - Headache [Not Recovered/Not Resolved]
